FAERS Safety Report 13654998 (Version 3)
Quarter: 2018Q1

REPORT INFORMATION
  Report Type: Spontaneous
  Country: IT (occurrence: IT)
  Receive Date: 20170615
  Receipt Date: 20180220
  Transmission Date: 20180508
  Serious: Yes (Hospitalization)
  Sender: FDA-Public Use
  Company Number: IT-B.I. PHARMACEUTICALS,INC./RIDGEFIELD-2017-BI-032367

PATIENT
  Age: 43 Year
  Sex: Female

DRUGS (3)
  1. MADOPAR [Suspect]
     Active Substance: BENSERAZIDE HYDROCHLORIDE\LEVODOPA
     Indication: PARKINSON^S DISEASE
     Dosage: STRENGTH 200 MG + 50 MG , CUMULATIVE DOSE TO FIRST REACTION: 46.5 DOSAGE FORMS
     Route: 048
     Dates: start: 20150401, end: 20170523
  2. AZILECT [Suspect]
     Active Substance: RASAGILINE MESYLATE
     Indication: PARKINSON^S DISEASE
     Dosage: CUMULATIVE DOSE TO FIRST REACTION: 62 DOSAGE FORMS
     Route: 048
     Dates: start: 20150401, end: 20170523
  3. MIRAPEXIN [Suspect]
     Active Substance: PRAMIPEXOLE
     Indication: PARKINSON^S DISEASE
     Dosage: CUMULATIVE DOSE TO FIRST REACTION: 62 DOSAGE FORMS
     Route: 048
     Dates: start: 20150401, end: 20170523

REACTIONS (4)
  - Hypersexuality [Recovering/Resolving]
  - Jealous delusion [Recovering/Resolving]
  - Impulsive behaviour [Recovering/Resolving]
  - Compulsive hoarding [Recovering/Resolving]

NARRATIVE: CASE EVENT DATE: 20150601
